FAERS Safety Report 8260883-4 (Version None)
Quarter: 2012Q2

REPORT INFORMATION
  Report Type: 
  Country: None (occurrence: None)
  Receive Date: 20120402
  Receipt Date: 20120321
  Transmission Date: 20120825
  Serious: Yes (Other)
  Sender: FDA-Public Use
  Company Number: A0970664A

PATIENT
  Age: 61 Year
  Sex: Female

DRUGS (1)
  1. METHYLCELLULOSE (FORMULATION UNKNOWN) (METHYLCELLULOSE) REGULAR [Suspect]
     Indication: SUPPLEMENTATION THERAPY
     Dosage: TWICE PER DAY

REACTIONS (1)
  - INTESTINAL OBSTRUCTION [None]
